FAERS Safety Report 5249779-X (Version None)
Quarter: 2007Q1

REPORT INFORMATION
  Report Type: 
  Country: None (occurrence: None)
  Receive Date: 20070228
  Receipt Date: 20061204
  Transmission Date: 20070707
  Serious: No
  Sender: FDA-Public Use
  Company Number: US-GLAXOSMITHKLINE-A0630268A

PATIENT
  Sex: Female

DRUGS (1)
  1. IMITREX [Suspect]
     Route: 065

REACTIONS (1)
  - THERAPEUTIC RESPONSE UNEXPECTED [None]
